FAERS Safety Report 5397669-4 (Version None)
Quarter: 2007Q3

REPORT INFORMATION
  Report Type: 
  Country: None (occurrence: None)
  Receive Date: 20070723
  Receipt Date: 20070723
  Transmission Date: 20080115
  Serious: Yes (Hospitalization)
  Sender: FDA-Public Use
  Company Number: None

PATIENT
  Sex: Male
  Weight: 26 kg

DRUGS (1)
  1. ARIPIPRAZOLE [Suspect]
     Dosage: 10 MG TABLET DAILY PO
     Route: 048

REACTIONS (1)
  - DYSKINESIA [None]
